FAERS Safety Report 7464884-5 (Version None)
Quarter: 2011Q2

REPORT INFORMATION
  Report Type: 
  Country: None (occurrence: None)
  Receive Date: 20110509
  Receipt Date: 20110426
  Transmission Date: 20111010
  Serious: Yes (Hospitalization, Other)
  Sender: FDA-Public Use
  Company Number: US-BAYER-2011-006434

PATIENT
  Age: 60 Year
  Sex: Female
  Weight: 90 kg

DRUGS (22)
  1. SYNTHROID [Concomitant]
     Dosage: 0.5 MG, QD
     Route: 048
  2. INSULIN [Concomitant]
     Dosage: TITRATED
     Route: 042
     Dates: start: 20040121
  3. ASPIRIN [Concomitant]
     Dosage: 81 MG, QD LONG TERM USE
     Route: 048
     Dates: end: 20040121
  4. SULAR [Concomitant]
  5. COMPAZINE [Concomitant]
  6. LASIX [Concomitant]
     Dosage: LONG TERM USE
     Route: 048
  7. HYTRIN [Concomitant]
     Dosage: 10 MG, QD
  8. NOREPINEPHRINE BITARTRATE [Concomitant]
     Dosage: TITRATED
     Route: 042
     Dates: start: 20040121, end: 20040121
  9. VASOPRESSIN [Concomitant]
     Dosage: 40 U, UNK
     Route: 042
     Dates: start: 20040121, end: 20040121
  10. AMITRIPTYLINE HCL [Concomitant]
     Dosage: 100 MG, QD
     Route: 048
  11. LOPRESSOR [Concomitant]
     Dosage: LONG TERM USE
     Route: 048
  12. PLAVIX [Concomitant]
     Dosage: 75 MG, QD, LONG TERM USE
     Route: 048
     Dates: end: 20040101
  13. LASIX [Concomitant]
     Dosage: 100 MG, UNK
     Route: 042
     Dates: start: 20040121, end: 20040121
  14. TRICOR [Concomitant]
     Dosage: 160 MG, QD
     Route: 048
  15. HYTRIN [Concomitant]
  16. PROCARDIA [Concomitant]
  17. TRASYLOL [Suspect]
     Indication: CARDIOPULMONARY BYPASS
  18. LISINOPRIL [Concomitant]
     Route: 048
  19. AMITRIPTYLINE [Concomitant]
  20. TRASYLOL [Suspect]
     Indication: MITRAL VALVE REPAIR
     Dosage: 200CC LOADING DOSE FOLLOWED BY 50CC/HR DRIP
     Route: 042
     Dates: start: 20040121, end: 20040121
  21. VERSED [Concomitant]
     Dosage: 7 MG, UNK
     Route: 042
     Dates: start: 20040121, end: 20040121
  22. CLONIDINE [Concomitant]

REACTIONS (14)
  - FEAR OF DEATH [None]
  - PSYCHIATRIC SYMPTOM [None]
  - ANXIETY [None]
  - PAIN [None]
  - INJURY [None]
  - ANHEDONIA [None]
  - MULTI-ORGAN FAILURE [None]
  - RENAL INJURY [None]
  - DEPRESSION [None]
  - RENAL FAILURE [None]
  - FEAR [None]
  - UNEVALUABLE EVENT [None]
  - EMOTIONAL DISTRESS [None]
  - NERVOUSNESS [None]
